FAERS Safety Report 7001471-7 (Version None)
Quarter: 2010Q3

REPORT INFORMATION
  Report Type: 
  Country: None (occurrence: None)
  Receive Date: 20100920
  Receipt Date: 20091113
  Transmission Date: 20110219
  Serious: No
  Sender: FDA-Public Use
  Company Number: US-ASTRAZENECA-2009SE26839

PATIENT
  Sex: Female
  Weight: 93.4 kg

DRUGS (2)
  1. SEROQUEL XR [Suspect]
     Route: 048
     Dates: start: 20091112
  2. AMBIEN [Concomitant]

REACTIONS (3)
  - ABDOMINAL DISCOMFORT [None]
  - DRY MOUTH [None]
  - TREMOR [None]
